FAERS Safety Report 9524602 (Version 3)
Quarter: 2013Q4

REPORT INFORMATION
  Report Type: Report from Study
  Country: NZ (occurrence: NZ)
  Receive Date: 20130916
  Receipt Date: 20131001
  Transmission Date: 20140711
  Serious: Yes (Hospitalization, Other)
  Sender: FDA-Public Use
  Company Number: PHHY2011NZ75438

PATIENT
  Age: 24 Year
  Sex: Male

DRUGS (1)
  1. CLOZARIL [Suspect]
     Indication: SCHIZOPHRENIA
     Dosage: 300 MG, IN NIGHT
     Dates: start: 20110805, end: 20130503

REACTIONS (6)
  - Thrombosis [Recovered/Resolved]
  - Dyspnoea [Unknown]
  - Chest pain [Unknown]
  - Grand mal convulsion [Recovered/Resolved]
  - Fibrin degradation products increased [Unknown]
  - Pulmonary embolism [Unknown]
